FAERS Safety Report 6870455-1 (Version None)
Quarter: 2010Q3

REPORT INFORMATION
  Report Type: 
  Country: None (occurrence: None)
  Receive Date: 20100723
  Receipt Date: 20100715
  Transmission Date: 20110219
  Serious: No
  Sender: FDA-Public Use
  Company Number: US-BIOGENIDEC-2010BI024655

PATIENT
  Sex: Female

DRUGS (2)
  1. TYSABRI [Suspect]
     Indication: MULTIPLE SCLEROSIS
     Route: 042
  2. COPAXONE [Concomitant]
     Indication: MULTIPLE SCLEROSIS

REACTIONS (1)
  - MULTIPLE SCLEROSIS RELAPSE [None]
